FAERS Safety Report 6529044-0 (Version None)
Quarter: 2009Q4

REPORT INFORMATION
  Report Type: 
  Country: None (occurrence: None)
  Receive Date: 20091231
  Receipt Date: 20091222
  Transmission Date: 20100525
  Serious: Yes (Hospitalization)
  Sender: FDA-Public Use
  Company Number: 2009SP025582

PATIENT
  Age: 66 Year
  Sex: Female

DRUGS (3)
  1. DEXAMETHASONE [Suspect]
     Indication: MULTIPLE MYELOMA
     Dosage: 40 MG;QD;PO
     Route: 048
     Dates: start: 20080815
  2. DASATINIB (DASATINIB) [Suspect]
     Indication: MULTIPLE MYELOMA
     Dosage: 70 MG;QD;PO
     Route: 048
     Dates: start: 20080815
  3. LENALIDOMIDE (LENALIDOMIDE) [Suspect]
     Indication: MULTIPLE MYELOMA
     Dosage: 15 MG;QD;PO
     Route: 048
     Dates: start: 20080815

REACTIONS (2)
  - DYSPNOEA [None]
  - PYREXIA [None]
